FAERS Safety Report 10797282 (Version 2)
Quarter: 2016Q3

REPORT INFORMATION
  Report Type: Spontaneous
  Country: US (occurrence: US)
  Receive Date: 20150216
  Receipt Date: 20160713
  Transmission Date: 20161109
  Serious: Yes (Other)
  Sender: FDA-Public Use
  Company Number: US-ASTRAZENECA-2015SE11543

PATIENT
  Age: 71 Year
  Sex: Female

DRUGS (5)
  1. OMEPRAZOLE. [Suspect]
     Active Substance: OMEPRAZOLE
     Route: 048
  2. PROTONIX [Concomitant]
     Active Substance: PANTOPRAZOLE SODIUM
  3. OMEPRAZOLE. [Suspect]
     Active Substance: OMEPRAZOLE
     Dosage: GASEC
     Route: 065
  4. GAS-X [Suspect]
     Active Substance: DIMETHICONE
     Route: 065
  5. ESOMEPRAZOLE MAGNESIUM. [Suspect]
     Active Substance: ESOMEPRAZOLE MAGNESIUM
     Route: 048

REACTIONS (8)
  - Gastrooesophageal reflux disease [Unknown]
  - Nausea [Unknown]
  - Drug ineffective [Unknown]
  - Dyspepsia [Unknown]
  - Hernia [Unknown]
  - Aplasia [Unknown]
  - Vomiting [Unknown]
  - Malaise [Unknown]
